FAERS Safety Report 7818428-6 (Version None)
Quarter: 2011Q4

REPORT INFORMATION
  Report Type: 
  Country: None (occurrence: None)
  Receive Date: 20111017
  Receipt Date: 20111010
  Transmission Date: 20120403
  Serious: Yes (Other)
  Sender: FDA-Public Use
  Company Number: CN-BAYER-2011-097641

PATIENT
  Age: 39 Year
  Sex: Male

DRUGS (1)
  1. LEVITRA [Suspect]
     Indication: ERECTILE DYSFUNCTION
     Dosage: 5 MG, Q2WK
     Dates: start: 20110201

REACTIONS (4)
  - AORTIC VALVE INCOMPETENCE [None]
  - AORTIC VALVE DISEASE [None]
  - AORTIC VALVE STENOSIS [None]
  - CARDIAC MURMUR [None]
